FAERS Safety Report 8832827 (Version 3)
Quarter: 2013Q1

REPORT INFORMATION
  Report Type: Spontaneous
  Country: JP (occurrence: JP)
  Receive Date: 20121010
  Receipt Date: 20130121
  Transmission Date: 20140127
  Serious: Yes (Hospitalization, Other)
  Sender: FDA-Public Use
  Company Number: JP-009507513-1210JPN002757

PATIENT
  Age: 74 Year
  Sex: Female
  Weight: 41 kg

DRUGS (11)
  1. MENESIT TABLETS - 100 [Suspect]
     Indication: PARKINSON^S DISEASE
     Dosage: DOSE 100 MG WAS TAKEN IMMEDIATELY AFTER MEAL AND THE DOSE 50 MG WAS TAKEN AT THE TIME BETWEEN MEALS
     Route: 048
     Dates: start: 20120808, end: 201212
  2. MENESIT [Suspect]
     Dosage: DOSE 100 MG WAS TAKEN IMMEDIATELY AFTER MEAL AND THE DOSE 50 MG WAS TAKEN AT THE TIME BETWEEN MEALS
     Route: 048
     Dates: start: 20120808, end: 201212
  3. BI SIFROL [Suspect]
     Indication: PARKINSON^S DISEASE
     Dosage: 0.5 MG, BID
     Route: 048
     Dates: start: 20120620, end: 20120807
  4. BI SIFROL [Suspect]
     Dosage: 0.5 MG, QD
     Dates: start: 20120808, end: 20120907
  5. BI SIFROL [Suspect]
     Dosage: 0.25 MG, QD
     Dates: start: 20120919
  6. CARBIDOPA (+) LEVODOPA [Suspect]
     Indication: PARKINSON^S DISEASE
     Dosage: 100 MG, Q4H
     Route: 048
     Dates: start: 20120620, end: 20120705
  7. GASMOTIN [Suspect]
     Indication: ABDOMINAL PAIN UPPER
     Dosage: 1 DF, TID
     Route: 048
     Dates: start: 20120620, end: 20120705
  8. MUCODYNE [Suspect]
     Indication: ABDOMINAL PAIN UPPER
     Dosage: 1 DF, TID
     Route: 048
     Dates: start: 20120620, end: 20120705
  9. MAGMITT [Suspect]
     Indication: CONSTIPATION
     Dosage: 1000 MG, BID
     Route: 048
     Dates: start: 20120620, end: 20120705
  10. GAMOFA D [Suspect]
     Indication: ABDOMINAL PAIN UPPER
     Dosage: 20 MG, BID
     Route: 048
     Dates: start: 20120620, end: 20120705
  11. CARBIDOPA (+) LEVODOPA [Suspect]
     Indication: PARKINSON^S DISEASE
     Dosage: 100 MG, Q4H
     Route: 048
     Dates: start: 20120706, end: 20120807

REACTIONS (6)
  - Hepatic function abnormal [Recovering/Resolving]
  - Alanine aminotransferase increased [Recovering/Resolving]
  - Aspartate aminotransferase increased [Recovering/Resolving]
  - Gamma-glutamyltransferase increased [Recovering/Resolving]
  - Blood alkaline phosphatase increased [Recovering/Resolving]
  - Drug-induced liver injury [None]
